FAERS Safety Report 17146096 (Version 1)
Quarter: 2019Q4

REPORT INFORMATION
  Report Type: Spontaneous
  Country: IT (occurrence: IT)
  Receive Date: 20191212
  Receipt Date: 20191212
  Transmission Date: 20200122
  Serious: Yes (Other)
  Sender: FDA-Public Use
  Company Number: IT-TEVA-2019-IT-1149519

PATIENT
  Age: 74 Year
  Sex: Male

DRUGS (2)
  1. MEMANTINE HYDROCHLORIDE. [Suspect]
     Active Substance: MEMANTINE HYDROCHLORIDE
     Indication: DEMENTIA ALZHEIMER^S TYPE
     Route: 065
     Dates: start: 20190909, end: 20190922
  2. VALSARTAN/IDROCLOROTIAZIDE [Concomitant]
     Active Substance: HYDROCHLOROTHIAZIDE\VALSARTAN
     Dosage: 160 MILLIGRAM
     Route: 048
     Dates: start: 20160101, end: 20190922

REACTIONS (3)
  - Aggression [Recovered/Resolved]
  - Hallucination [Recovered/Resolved]
  - Neuropsychiatric symptoms [Recovered/Resolved]

NARRATIVE: CASE EVENT DATE: 20190923
